FAERS Safety Report 7002893-0 (Version None)
Quarter: 2010Q3

REPORT INFORMATION
  Report Type: 
  Country: None (occurrence: None)
  Receive Date: 20100920
  Receipt Date: 20070618
  Transmission Date: 20110219
  Serious: Yes (Other)
  Sender: FDA-Public Use
  Company Number: US-ASTRAZENECA-2006UW25407

PATIENT
  Sex: Female
  Weight: 59 kg

DRUGS (9)
  1. SEROQUEL [Suspect]
     Indication: ANXIETY
     Route: 048
     Dates: start: 20000101, end: 20010101
  2. SEROQUEL [Suspect]
     Indication: INSOMNIA
     Route: 048
     Dates: start: 20000101, end: 20010101
  3. SEROQUEL [Suspect]
     Route: 048
     Dates: start: 20040511
  4. SEROQUEL [Suspect]
     Route: 048
     Dates: start: 20040511
  5. AMBIEN [Concomitant]
     Route: 048
     Dates: start: 19990720
  6. PROMETHAZINE [Concomitant]
     Route: 048
     Dates: start: 19990720
  7. EFFEXOR [Concomitant]
     Route: 048
     Dates: start: 19990720
  8. ALPRAZOLAM [Concomitant]
     Route: 048
     Dates: start: 20000211
  9. HYDROCODONE BITARTRATE AND ACETAMINOPHEN [Concomitant]
     Dosage: 7.5/500 MG
     Route: 048
     Dates: start: 20000718

REACTIONS (2)
  - DIABETES MELLITUS [None]
  - KETOACIDOSIS [None]
